FAERS Safety Report 5992156-4 (Version None)
Quarter: 2008Q4

REPORT INFORMATION
  Report Type: 
  Country: None (occurrence: None)
  Receive Date: 20081202
  Receipt Date: 20071106
  Transmission Date: 20090506
  Serious: Yes (Other)
  Sender: FDA-Public Use
  Company Number: WAES 0706USA00841

PATIENT
  Age: 81 Year
  Sex: Female

DRUGS (1)
  1. FOSAMAX [Suspect]
     Indication: OSTEOPOROSIS
     Dosage: 70MG/PO
     Route: 048
     Dates: start: 20010101, end: 20020101

REACTIONS (10)
  - ADVERSE EVENT [None]
  - BONE FRAGMENTATION [None]
  - FATIGUE [None]
  - GINGIVAL DISORDER [None]
  - GINGIVITIS [None]
  - HYPERTENSION [None]
  - NEOPLASM [None]
  - PERIODONTITIS [None]
  - TOOTH LOSS [None]
  - TOOTHACHE [None]
